FAERS Safety Report 7875742-6 (Version None)
Quarter: 2011Q4

REPORT INFORMATION
  Report Type: 
  Country: None (occurrence: None)
  Receive Date: 20111031
  Receipt Date: 20111025
  Transmission Date: 20120403
  Serious: Yes (Hospitalization)
  Sender: FDA-Public Use
  Company Number: US-JNJFOC-20111011322

PATIENT
  Sex: Male
  Weight: 65.77 kg

DRUGS (1)
  1. ZYTIGA [Suspect]
     Indication: PROSTATE CANCER
     Dosage: 1000 MG ONCE A DAY
     Route: 048
     Dates: start: 20111012

REACTIONS (5)
  - INAPPROPRIATE SCHEDULE OF DRUG ADMINISTRATION [None]
  - PNEUMONIA [None]
  - KIDNEY INFECTION [None]
  - BLOOD CREATININE INCREASED [None]
  - FLUID RETENTION [None]
